FAERS Safety Report 7608714-7 (Version None)
Quarter: 2011Q3

REPORT INFORMATION
  Report Type: 
  Country: None (occurrence: None)
  Receive Date: 20110714
  Receipt Date: 20110708
  Transmission Date: 20111222
  Serious: Yes (Other)
  Sender: FDA-Public Use
  Company Number: US-ALLERGAN-1108384US

PATIENT
  Age: 83 Year
  Sex: Female

DRUGS (4)
  1. ALPHAGAN P [Suspect]
     Indication: INTRAOCULAR PRESSURE INCREASED
     Dosage: 1 GTT, BID
     Route: 047
     Dates: start: 20100611, end: 20100928
  2. XALATAN [Concomitant]
     Indication: PRODUCT USED FOR UNKNOWN INDICATION
  3. LUMIGAN [Concomitant]
  4. ALPHAGAN P [Suspect]
     Dosage: 1 GTT, BID
     Dates: end: 20001001

REACTIONS (12)
  - BLEPHARITIS [None]
  - EYE IRRITATION [None]
  - DRUG INTOLERANCE [None]
  - VISION BLURRED [None]
  - HYPERSENSITIVITY [None]
  - EYE PAIN [None]
  - PHOTOPSIA [None]
  - PHOTOPHOBIA [None]
  - LACRIMATION INCREASED [None]
  - VISUAL ACUITY REDUCED [None]
  - EYE SWELLING [None]
  - OCULAR HYPERAEMIA [None]
